FAERS Safety Report 8062066-X (Version None)
Quarter: 2012Q1

REPORT INFORMATION
  Report Type: 
  Country: None (occurrence: None)
  Receive Date: 20120120
  Receipt Date: 20120120
  Transmission Date: 20120608
  Serious: No
  Sender: FDA-Public Use
  Company Number: None

PATIENT
  Sex: Female
  Weight: 96.1 kg

DRUGS (1)
  1. NOLVADEX [Suspect]
     Dates: end: 20120109

REACTIONS (2)
  - PULSE ABSENT [None]
  - SYNCOPE [None]
